FAERS Safety Report 5147284-2 (Version None)
Quarter: 2006Q4

REPORT INFORMATION
  Report Type: 
  Country: None (occurrence: None)
  Receive Date: 20061103
  Receipt Date: 20060721
  Transmission Date: 20070319
  Serious: Yes (Other)
  Sender: FDA-Public Use
  Company Number: 251006001/373 AE

PATIENT
  Sex: Male

DRUGS (2)
  1. TESTIM [Suspect]
     Dosage: TRANSDERMAL
     Route: 062
  2. ANDROGEL [Suspect]

REACTIONS (3)
  - ACCIDENTAL EXPOSURE [None]
  - INJURY [None]
  - MENTAL DISORDER [None]
